FAERS Safety Report 4347922-8 (Version None)
Quarter: 2004Q1

REPORT INFORMATION
  Report Type: 
  Country: None (occurrence: None)
  Receive Date: 20040325
  Receipt Date: 20040114
  Transmission Date: 20041129
  Serious: No
  Sender: FDA-Public Use
  Company Number: USA031152709

PATIENT
  Sex: Female

DRUGS (9)
  1. FORTEO [Suspect]
     Indication: OSTEOPOROSIS
     Dates: start: 20030901
  2. CALCIUM [Concomitant]
  3. ATIVAN [Concomitant]
  4. AMBIEN [Concomitant]
  5. MULTI-VITAMIN [Concomitant]
  6. CHLOR-TRIMETON [Concomitant]
  7. FLAXSEED OIL [Concomitant]
  8. FISH OIL [Concomitant]
  9. IBUPROFEN [Concomitant]

REACTIONS (6)
  - ARTHRALGIA [None]
  - BACK PAIN [None]
  - BONE PAIN [None]
  - NECK PAIN [None]
  - PAIN [None]
  - PAIN IN EXTREMITY [None]
